FAERS Safety Report 9845502 (Version 1)
Quarter: 2014Q1

REPORT INFORMATION
  Report Type: Spontaneous
  Country: US (occurrence: None)
  Receive Date: 20140123
  Receipt Date: 20140123
  Transmission Date: 20141002
  Serious: Yes (Disabling, Other)
  Sender: FDA-Public Use
  Company Number: None

PATIENT
  Age: 60 None
  Sex: Female
  Weight: 56.7 kg

DRUGS (6)
  1. LIDOCAINE PATCH [Suspect]
     Indication: NEURALGIA
     Dosage: APPLY 1 PATCH 12 HRS ON 12 HRS OFF TRANSDERMAL-PATCH APPLIED TO CLENA/DRY SKIN AREA
     Route: 062
     Dates: start: 20131220, end: 20131222
  2. LIDOCAINE PATCH [Suspect]
     Indication: LUMBAR RADICULOPATHY
     Dosage: APPLY 1 PATCH 12 HRS ON 12 HRS OFF TRANSDERMAL-PATCH APPLIED TO CLENA/DRY SKIN AREA
     Route: 062
     Dates: start: 20131220, end: 20131222
  3. MONTHYL B12 INJECTIONS [Concomitant]
  4. ANTIBIOTICS [Concomitant]
  5. LYRICA PM NERVE PAIN [Concomitant]
  6. LIDODERM AM NERVE PAIN [Concomitant]

REACTIONS (4)
  - Drug ineffective [None]
  - Product adhesion issue [None]
  - Product substitution issue [None]
  - Product quality issue [None]
